FAERS Safety Report 7968938-6 (Version None)
Quarter: 2011Q4

REPORT INFORMATION
  Report Type: 
  Country: None (occurrence: None)
  Receive Date: 20111209
  Receipt Date: 20111202
  Transmission Date: 20120403
  Serious: Yes (Life-Threatening, Hospitalization, Other)
  Sender: FDA-Public Use
  Company Number: JP-CEPHALON-2011001042

PATIENT
  Sex: Female
  Weight: 58 kg

DRUGS (10)
  1. SULFAMETHOXAZOLE SODIUM [Concomitant]
     Dates: start: 20110208
  2. FLUCONAZOLE [Concomitant]
     Dates: start: 20110208
  3. URSODIOL [Concomitant]
     Dates: start: 20110228
  4. INSULIN DETEMIR [Concomitant]
     Dates: start: 20110207
  5. OMEPRAZOLE [Concomitant]
     Dates: start: 20110208
  6. SENNOSIDE A [Concomitant]
     Dates: start: 20110201
  7. BENDAMUSTINE HCL [Suspect]
     Indication: B-CELL LYMPHOMA
     Route: 042
     Dates: start: 20110208
  8. INSULIN HUMAN [Concomitant]
     Dates: start: 20110207
  9. RAMOSETRON HYDROCHLORIDE [Concomitant]
     Dates: start: 20110208
  10. ENTECAVIR [Concomitant]
     Dates: start: 20110215

REACTIONS (7)
  - MALAISE [None]
  - PLATELET COUNT DECREASED [None]
  - NEUTROPHIL COUNT DECREASED [None]
  - DECREASED APPETITE [None]
  - HEPATITIS B [None]
  - LYMPHOCYTE COUNT DECREASED [None]
  - WHITE BLOOD CELL COUNT DECREASED [None]
